FAERS Safety Report 10504519 (Version 2)
Quarter: 2014Q4

REPORT INFORMATION
  Report Type: Spontaneous
  Country: US (occurrence: US)
  Receive Date: 20141008
  Receipt Date: 20141031
  Transmission Date: 20150528
  Serious: Yes (Other)
  Sender: FDA-Public Use
  Company Number: US-ASTRAZENECA-2014SE73625

PATIENT
  Age: 65 Year
  Sex: Male
  Weight: 79.4 kg

DRUGS (6)
  1. PRILOSEC OTC [Suspect]
     Active Substance: OMEPRAZOLE MAGNESIUM
     Indication: GASTROOESOPHAGEAL REFLUX DISEASE
     Route: 048
     Dates: start: 20140513, end: 20140806
  2. XALKORI [Suspect]
     Active Substance: CRIZOTINIB
     Indication: LUNG CARCINOMA CELL TYPE UNSPECIFIED STAGE IV
     Route: 048
     Dates: start: 2012
  3. PRILOSEC [Suspect]
     Active Substance: OMEPRAZOLE MAGNESIUM
     Route: 048
  4. FISH OIL [Concomitant]
     Active Substance: FISH OIL
     Dosage: DAILY
  5. XANAX [Concomitant]
     Active Substance: ALPRAZOLAM
  6. BABY ASPIRIN [Concomitant]
     Active Substance: ASPIRIN
     Dosage: DAILY

REACTIONS (3)
  - Inhibitory drug interaction [Unknown]
  - Tumour marker increased [Unknown]
  - Carcinoembryonic antigen increased [Unknown]
